FAERS Safety Report 10304714 (Version 1)
Quarter: 2014Q3

REPORT INFORMATION
  Report Type: Spontaneous
  Country: US (occurrence: None)
  Receive Date: 20140710
  Receipt Date: 20140710
  Transmission Date: 20150326
  Serious: Yes (Life-Threatening, Hospitalization, Disabling)
  Sender: FDA-Public Use
  Company Number: None

PATIENT
  Age: 69 Year
  Sex: Female
  Weight: 106 kg

DRUGS (16)
  1. CETIRIZINE [Concomitant]
     Active Substance: CETIRIZINE HYDROCHLORIDE
  2. VESICARE [Concomitant]
     Active Substance: SOLIFENACIN SUCCINATE
  3. CHOLESTYRAMINE. [Concomitant]
     Active Substance: CHOLESTYRAMINE
  4. FUROSEMIDE. [Concomitant]
     Active Substance: FUROSEMIDE
  5. GABAPENTIN. [Concomitant]
     Active Substance: GABAPENTIN
  6. ALBUTEROL. [Concomitant]
     Active Substance: ALBUTEROL
  7. VICTOZA [Concomitant]
     Active Substance: LIRAGLUTIDE
  8. OMEPRAZOLE. [Concomitant]
     Active Substance: OMEPRAZOLE
  9. PRADAXA [Suspect]
     Active Substance: DABIGATRAN ETEXILATE MESYLATE
     Indication: ATRIAL FIBRILLATION
     Dosage: 1 CAPSULE BID ORAL
     Route: 048
  10. ATENOLOL. [Concomitant]
     Active Substance: ATENOLOL
  11. ASPIRIN. [Concomitant]
     Active Substance: ASPIRIN
  12. GLIPIZIDE. [Concomitant]
     Active Substance: GLIPIZIDE
  13. PRAVASTATIN [Concomitant]
     Active Substance: PRAVASTATIN\PRAVASTATIN SODIUM
  14. LISINOPRIL. [Concomitant]
     Active Substance: LISINOPRIL
  15. ASACOL [Concomitant]
     Active Substance: MESALAMINE
  16. KCENTRA [Suspect]
     Active Substance: COAGULATION FACTOR IX HUMAN\COAGULATION FACTOR VII HUMAN\COAGULATION FACTOR X HUMAN\PROTEIN C\PROTEIN S HUMAN\PROTHROMBIN
     Indication: HAEMORRHAGE
     Dosage: 5000 UNITS  ONCE  INTRAVENOUS
     Route: 042
     Dates: start: 20140708, end: 20140708

REACTIONS (7)
  - Cerebral infarction [None]
  - Haematuria [None]
  - Coagulopathy [None]
  - Haemoglobin [None]
  - Unresponsive to stimuli [None]
  - Cerebrovascular accident [None]
  - Hypotension [None]

NARRATIVE: CASE EVENT DATE: 20140707
